FAERS Safety Report 7729842-1 (Version None)
Quarter: 2011Q3

REPORT INFORMATION
  Report Type: 
  Country: None (occurrence: None)
  Receive Date: 20110906
  Receipt Date: 20110830
  Transmission Date: 20111222
  Serious: Yes (Hospitalization)
  Sender: FDA-Public Use
  Company Number: FR-SANOFI-AVENTIS-2011SA055515

PATIENT
  Age: 46 Year
  Sex: Female

DRUGS (2)
  1. RELENZA [Suspect]
     Route: 042
     Dates: start: 20110217, end: 20110220
  2. FUROSEMIDE [Suspect]
     Route: 042
     Dates: start: 20110214

REACTIONS (2)
  - HYPOTENSION [None]
  - BRADYCARDIA [None]
